FAERS Safety Report 10106512 (Version 2)
Quarter: 2014Q2

REPORT INFORMATION
  Report Type: Other
  Country: US (occurrence: US)
  Receive Date: 20140424
  Receipt Date: 20140624
  Transmission Date: 20141212
  Serious: Yes (Death, Hospitalization, Other)
  Sender: FDA-Public Use
  Company Number: US-GSKPPD-2014GSK002344

PATIENT
  Age: 65 Year
  Sex: Male
  Weight: 93.07 kg

DRUGS (8)
  1. AVANDIA [Suspect]
     Indication: DIABETES MELLITUS
     Route: 048
     Dates: start: 1999
  2. ECOTRIN [Concomitant]
     Route: 048
  3. PLAVIX [Concomitant]
     Route: 048
  4. LASIX [Concomitant]
     Route: 048
  5. TOPROL-XL [Concomitant]
     Route: 048
  6. K-DUR [Concomitant]
     Route: 048
  7. CAPOTEN [Concomitant]
     Route: 048
  8. NITRO PATCH [Concomitant]
     Route: 062

REACTIONS (3)
  - Myocardial infarction [None]
  - Cardiac failure congestive [None]
  - Cerebrovascular accident [Fatal]
